FAERS Safety Report 25821728 (Version 1)
Quarter: 2025Q3

REPORT INFORMATION
  Report Type: Spontaneous
  Country: US (occurrence: US)
  Receive Date: 20250919
  Receipt Date: 20250919
  Transmission Date: 20251021
  Serious: No
  Sender: TARO
  Company Number: US-TARO PHARMACEUTICALS USA INC.-2024TAR02878

PATIENT
  Sex: Female
  Weight: 29.478 kg

DRUGS (1)
  1. CLOTRIMAZOLE [Suspect]
     Active Substance: CLOTRIMAZOLE
     Indication: Fungal infection
     Route: 001
     Dates: start: 20241223

REACTIONS (4)
  - Off label use [Unknown]
  - Screaming [Recovered/Resolved]
  - Ear discomfort [Recovered/Resolved]
  - Pain [Recovered/Resolved]
